FAERS Safety Report 25569379 (Version 2)
Quarter: 2025Q3

REPORT INFORMATION
  Report Type: Spontaneous
  Country: JP (occurrence: JP)
  Receive Date: 20250716
  Receipt Date: 20250721
  Transmission Date: 20251020
  Serious: Yes (Other)
  Sender: AMGEN
  Company Number: JP-DSJP-DS-2025-152384-

PATIENT
  Age: 75 Year
  Sex: Female

DRUGS (1)
  1. DENOSUMAB [Suspect]
     Active Substance: DENOSUMAB
     Indication: Osteoporosis
     Dosage: 60 MILLIGRAM, Q6MO
     Route: 058

REACTIONS (2)
  - Compression fracture [Unknown]
  - Intentional dose omission [Unknown]
